FAERS Safety Report 6029200-4 (Version None)
Quarter: 2009Q1

REPORT INFORMATION
  Report Type: 
  Country: None (occurrence: None)
  Receive Date: 20090106
  Receipt Date: 20081229
  Transmission Date: 20090719
  Serious: Yes (Death, Other)
  Sender: FDA-Public Use
  Company Number: NL-ROXANE LABORATORIES, INC.-2008-RO-00493RO

PATIENT
  Age: 27 Day
  Weight: 1 kg

DRUGS (1)
  1. DEXAMETHASONE [Suspect]
     Indication: RESPIRATORY DISORDER NEONATAL

REACTIONS (3)
  - BLOOD PRESSURE INCREASED [None]
  - DEATH [None]
  - THYROID FUNCTION TEST ABNORMAL [None]
